FAERS Safety Report 4357294-0 (Version None)
Quarter: 2004Q2

REPORT INFORMATION
  Report Type: 
  Country: None (occurrence: None)
  Receive Date: 20040507
  Receipt Date: 20040421
  Transmission Date: 20050107
  Serious: Yes (Hospitalization, Other)
  Sender: FDA-Public Use
  Company Number: US_0404102483

PATIENT
  Age: 62 Year
  Sex: Female
  Weight: 70 kg

DRUGS (2)
  1. HUMULIN L [Suspect]
     Dosage: 28 U DAY
     Dates: start: 19940101
  2. HUMULIN R [Suspect]
     Dosage: 16 U DAY
     Dates: start: 19940101

REACTIONS (6)
  - CARCINOMA [None]
  - CEREBROVASCULAR ACCIDENT [None]
  - DIFFICULTY IN WALKING [None]
  - PHARMACEUTICAL PRODUCT COMPLAINT [None]
  - RECTAL CANCER [None]
  - SPEECH DISORDER [None]
